FAERS Safety Report 23326497 (Version 1)
Quarter: 2023Q4

REPORT INFORMATION
  Report Type: Spontaneous
  Country: US (occurrence: US)
  Receive Date: 20231221
  Receipt Date: 20231221
  Transmission Date: 20240109
  Serious: Yes (Other)
  Sender: FDA-Public Use
  Company Number: US-BIOVITRUM-2023-US-020583

PATIENT
  Age: 60 Year
  Sex: Female

DRUGS (1)
  1. DOPTELET [Suspect]
     Active Substance: AVATROMBOPAG MALEATE
     Indication: Immune thrombocytopenia
     Dosage: TWICE WEEKLY
     Route: 048
     Dates: start: 20220716

REACTIONS (4)
  - Blood sodium decreased [Unknown]
  - Loss of consciousness [Unknown]
  - Fluid intake restriction [Unknown]
  - Behaviour disorder [Unknown]
